FAERS Safety Report 22109819 (Version 1)
Quarter: 2023Q1

REPORT INFORMATION
  Report Type: Spontaneous
  Country: CN (occurrence: None)
  Receive Date: 20230317
  Receipt Date: 20230317
  Transmission Date: 20230417
  Serious: Yes (Death)
  Sender: FDA-Public Use
  Company Number: 2023A063077

PATIENT
  Age: 76 Year
  Sex: Male
  Weight: 51 kg

DRUGS (2)
  1. IMFINZI [Suspect]
     Active Substance: DURVALUMAB
     Indication: Non-small cell lung cancer stage III
     Dosage: 500 MG/CYCLE, USING SPECIFICATION: 500MG/10ML
     Route: 042
     Dates: start: 20200619
  2. IMFINZI [Suspect]
     Active Substance: DURVALUMAB
     Indication: Non-small cell lung cancer stage III
     Dosage: 500 MG/CYCLE, USING SPECIFICATION: 500MG/10ML
     Route: 042
     Dates: start: 20200710

REACTIONS (1)
  - Metastases to liver [Fatal]

NARRATIVE: CASE EVENT DATE: 20200612
